FAERS Safety Report 26135647 (Version 1)
Quarter: 2025Q4

REPORT INFORMATION
  Report Type: Spontaneous
  Country: SG (occurrence: SG)
  Receive Date: 20251209
  Receipt Date: 20251209
  Transmission Date: 20260118
  Serious: Yes (Other)
  Sender: ROCHE
  Company Number: SG-ROCHE-10000451293

PATIENT
  Age: 51 Year
  Sex: Female

DRUGS (1)
  1. TAMIFLU [Suspect]
     Active Substance: OSELTAMIVIR PHOSPHATE
     Indication: Product used for unknown indication

REACTIONS (1)
  - Dyspnoea [Unknown]

NARRATIVE: CASE EVENT DATE: 20251004
